FAERS Safety Report 11700326 (Version 10)
Quarter: 2016Q3

REPORT INFORMATION
  Report Type: Report from Study
  Country: NL (occurrence: BE)
  Receive Date: 20151105
  Receipt Date: 20160706
  Transmission Date: 20161109
  Serious: Yes (Life-Threatening, Hospitalization)
  Sender: FDA-Public Use
  Company Number: NL-JNJFOC-20151021608

PATIENT
  Age: 46 Year
  Sex: Female
  Weight: 65 kg

DRUGS (2)
  1. CANAGLIFLOZIN 10% MONOHYDRATE/90% HEMIHYDRATE [Suspect]
     Active Substance: CANAGLIFLOZIN
     Indication: DRUG LEVEL
     Route: 048
     Dates: start: 20151021, end: 20151021
  2. MICROGYN [Concomitant]
     Active Substance: ETHINYL ESTRADIOL\LEVONORGESTREL
     Indication: CONTRACEPTION
     Route: 048
     Dates: start: 2012

REACTIONS (2)
  - Ischaemic cerebral infarction [Recovering/Resolving]
  - Malaise [Unknown]

NARRATIVE: CASE EVENT DATE: 20151027
